FAERS Safety Report 9369902 (Version 1)
Quarter: 2013Q2

REPORT INFORMATION
  Report Type: Spontaneous
  Country: US (occurrence: US)
  Receive Date: 20130626
  Receipt Date: 20130626
  Transmission Date: 20140414
  Serious: Yes (Hospitalization)
  Sender: FDA-Public Use
  Company Number: US-PFIZER INC-2013187584

PATIENT
  Age: 52 Year
  Sex: Female
  Weight: 77.1 kg

DRUGS (16)
  1. LYRICA [Suspect]
     Indication: FIBROMYALGIA
     Dosage: UNK, 2X/DAY
  2. LYRICA [Suspect]
     Dosage: 150 MG, 3X/DAY
     Dates: start: 201001
  3. LYRICA [Suspect]
     Dosage: UNK
     Dates: end: 20120903
  4. LYRICA [Suspect]
     Dosage: UNK
     Dates: end: 201212
  5. LYRICA [Suspect]
     Dosage: UNK
     Dates: end: 201306
  6. METHOTREXATE [Suspect]
     Dosage: UNK
  7. GEODON [Concomitant]
     Dosage: UNK
  8. CITALOPRAM [Concomitant]
     Dosage: 40 MG DAILY
  9. HYDROXYCHLOROQUINE [Concomitant]
     Indication: SYSTEMIC LUPUS ERYTHEMATOSUS
     Dosage: 200 MG, 2X/DAY
  10. LAMOTRIGINE [Concomitant]
     Dosage: 100 MG, 2X/DAY
  11. TRAZODONE [Concomitant]
     Dosage: 300 MG DAILY
  12. DIAZEPAM [Concomitant]
     Dosage: 5 MG, 2X/DAY
  13. OMEPRAZOLE [Concomitant]
     Dosage: 20 MG, 2X/DAY
  14. SINGULAIR [Concomitant]
     Dosage: 10 MG DAILY
  15. SALSALATE [Concomitant]
     Indication: ARTHRITIS
     Dosage: 1500 MG DAILY
  16. HYDROCODONE W/ACETAMINOPHEN [Concomitant]
     Indication: PAIN
     Dosage: HYDROCODONE (7.5MG)/ACETAMINOPHEN (325 MG), 3X/DAY

REACTIONS (12)
  - Intentional drug misuse [Unknown]
  - Withdrawal syndrome [Unknown]
  - Cold sweat [Unknown]
  - Hyperhidrosis [Unknown]
  - Influenza [Unknown]
  - Pallor [Unknown]
  - Restlessness [Unknown]
  - Dehydration [Unknown]
  - Vomiting [Unknown]
  - Heart rate decreased [Unknown]
  - Hypotension [Unknown]
  - Flatulence [Unknown]
